FAERS Safety Report 24013167 (Version 1)
Quarter: 2024Q2

REPORT INFORMATION
  Report Type: Report from Study
  Country: GB (occurrence: GB)
  Receive Date: 20240626
  Receipt Date: 20240626
  Transmission Date: 20240715
  Serious: Yes (Other)
  Sender: FDA-Public Use
  Company Number: GB-JNJFOC-20240563221

PATIENT
  Age: 8 Decade
  Sex: Female

DRUGS (15)
  1. STELARA [Suspect]
     Active Substance: USTEKINUMAB
     Indication: Crohn^s disease
     Route: 058
     Dates: start: 20190902
  2. STELARA [Suspect]
     Active Substance: USTEKINUMAB
     Route: 058
     Dates: start: 2021
  3. BUTYLSCOPOLAMINE BROMIDE [Concomitant]
     Active Substance: BUTYLSCOPOLAMINE BROMIDE
  4. COLISTIN [Concomitant]
     Active Substance: COLISTIN
  5. LOPERAMIDE [Concomitant]
     Active Substance: LOPERAMIDE
  6. MORPHINE [Concomitant]
     Active Substance: MORPHINE
  7. CODEINE [Concomitant]
     Active Substance: CODEINE
  8. COCODAMOL [Concomitant]
     Active Substance: ACETAMINOPHEN\CODEINE PHOSPHATE
  9. ALLOPURINOL [Concomitant]
     Active Substance: ALLOPURINOL
  10. APIXABAN [Concomitant]
     Active Substance: APIXABAN
  11. ATORVASTATIN [Concomitant]
     Active Substance: ATORVASTATIN
  12. BISOPROLOL [Concomitant]
     Active Substance: BISOPROLOL\BISOPROLOL FUMARATE
  13. GABAPENTIN [Concomitant]
     Active Substance: GABAPENTIN
  14. LEVOTHYROXINE [Concomitant]
     Active Substance: LEVOTHYROXINE\LEVOTHYROXINE SODIUM
  15. SERTRALINE [Concomitant]
     Active Substance: SERTRALINE HYDROCHLORIDE

REACTIONS (5)
  - Crohn^s disease [Unknown]
  - COVID-19 [Unknown]
  - Device issue [Unknown]
  - Product dose omission issue [Unknown]
  - Device breakage [Unknown]
